FAERS Safety Report 14273312 (Version 3)
Quarter: 2018Q1

REPORT INFORMATION
  Report Type: Spontaneous
  Country: US (occurrence: US)
  Receive Date: 20171212
  Receipt Date: 20180205
  Transmission Date: 20180508
  Serious: Yes (Other)
  Sender: FDA-Public Use
  Company Number: US-CELGENEUS-USA-20171203029

PATIENT
  Sex: Female
  Weight: 68.55 kg

DRUGS (1)
  1. REVLIMID [Suspect]
     Active Substance: LENALIDOMIDE
     Indication: PLASMA CELL MYELOMA
     Dosage: 25 MILLIGRAM
     Route: 048
     Dates: start: 20171114

REACTIONS (13)
  - Stomatitis [Unknown]
  - Bone pain [Unknown]
  - Musculoskeletal chest pain [Unknown]
  - Back pain [Unknown]
  - Fatigue [Not Recovered/Not Resolved]
  - Rash macular [Unknown]
  - Fatigue [Unknown]
  - Diarrhoea [Unknown]
  - Osteolysis [Unknown]
  - Hot flush [Unknown]
  - Pain in extremity [Unknown]
  - Muscular weakness [Unknown]
  - Constipation [Unknown]

NARRATIVE: CASE EVENT DATE: 2017
